FAERS Safety Report 5503156-2 (Version None)
Quarter: 2007Q4

REPORT INFORMATION
  Report Type: 
  Country: None (occurrence: None)
  Receive Date: 20071031
  Receipt Date: 20071024
  Transmission Date: 20080405
  Serious: Yes (Death)
  Sender: FDA-Public Use
  Company Number: NL-AVENTIS-200719865GDDC

PATIENT
  Age: 38 Year
  Sex: Female

DRUGS (7)
  1. METRONIDAZOLE [Suspect]
     Indication: WOUND INFECTION
     Route: 042
  2. METRONIDAZOLE [Suspect]
  3. METRONIDAZOLE [Suspect]
     Indication: OSTEOMYELITIS
     Route: 042
  4. METRONIDAZOLE [Suspect]
  5. HALORAN                            /00372302/ [Suspect]
  6. VANCOMYCIN [Concomitant]
     Dosage: DOSE: UNK
  7. TEICOPLANIN [Concomitant]
     Dosage: DOSE: UNK

REACTIONS (1)
  - ENCEPHALOPATHY [None]
